FAERS Safety Report 20336134 (Version 11)
Quarter: 2024Q1

REPORT INFORMATION
  Report Type: Spontaneous
  Country: US (occurrence: US)
  Receive Date: 20220114
  Receipt Date: 20240125
  Transmission Date: 20240409
  Serious: Yes (Other)
  Sender: FDA-Public Use
  Company Number: US-PFIZER INC-202101843179

PATIENT
  Age: 82 Year
  Sex: Female

DRUGS (6)
  1. IBRANCE [Suspect]
     Active Substance: PALBOCICLIB
     Dosage: 125 MG
     Dates: start: 20211207
  2. IBRANCE [Suspect]
     Active Substance: PALBOCICLIB
     Dosage: 125 MG
     Dates: start: 20211209
  3. IBRANCE [Suspect]
     Active Substance: PALBOCICLIB
     Dosage: 125 MG
     Dates: start: 20211220, end: 202203
  4. IBRANCE [Suspect]
     Active Substance: PALBOCICLIB
     Dosage: 75 MG
     Dates: end: 20230607
  5. IBRANCE [Suspect]
     Active Substance: PALBOCICLIB
     Dosage: 75 MG, CYCLIC (ONCE DAILY FOR 21DAYS, FOLLOWED BY 7 DAYS OFF, REPEATED EVERY 28DAYS)
     Route: 048
     Dates: start: 202209
  6. ANASTROZOLE [Concomitant]
     Active Substance: ANASTROZOLE
     Dosage: UNK

REACTIONS (20)
  - Thrombocytopenia [Unknown]
  - Tooth extraction [Unknown]
  - Epistaxis [Recovered/Resolved]
  - Nocturia [Unknown]
  - Chromaturia [Unknown]
  - Diarrhoea [Unknown]
  - Dry mouth [Not Recovered/Not Resolved]
  - Swelling face [Unknown]
  - Full blood count abnormal [Unknown]
  - Sinus disorder [Unknown]
  - White blood cell count decreased [Unknown]
  - Fatigue [Unknown]
  - Nausea [Unknown]
  - Dry skin [Unknown]
  - Dizziness [Not Recovered/Not Resolved]
  - Pollakiuria [Unknown]
  - Vomiting [Unknown]
  - Abdominal pain upper [Unknown]
  - Pain in extremity [Not Recovered/Not Resolved]
  - Arthralgia [Not Recovered/Not Resolved]

NARRATIVE: CASE EVENT DATE: 20211201
